FAERS Safety Report 20063500 (Version 1)
Quarter: 2021Q4

REPORT INFORMATION
  Report Type: Spontaneous
  Country: CA (occurrence: CA)
  Receive Date: 20211112
  Receipt Date: 20211112
  Transmission Date: 20220303
  Serious: Yes (Hospitalization)
  Sender: FDA-Public Use
  Company Number: CA-TEVA-2021-CA-1975362

PATIENT
  Age: 86 Year
  Sex: Female
  Weight: 56 kg

DRUGS (1)
  1. CARBAMAZEPINE [Suspect]
     Active Substance: CARBAMAZEPINE
     Dosage: 200 MILLIGRAM DAILY;
     Route: 048

REACTIONS (3)
  - Delirium [Unknown]
  - Hyponatraemia [Unknown]
  - Inappropriate antidiuretic hormone secretion [Unknown]
